FAERS Safety Report 7770105-6 (Version None)
Quarter: 2011Q3

REPORT INFORMATION
  Report Type: 
  Country: None (occurrence: None)
  Receive Date: 20110922
  Receipt Date: 20110916
  Transmission Date: 20111222
  Serious: Yes (Death, Life-Threatening, Hospitalization, Other)
  Sender: FDA-Public Use
  Company Number: JP-ABBOTT-11P-087-0733456-00

PATIENT
  Sex: Female
  Weight: 43 kg

DRUGS (11)
  1. HUMIRA [Suspect]
     Dates: start: 20110301, end: 20110301
  2. FENTANYL [Concomitant]
     Indication: PAIN
     Route: 062
     Dates: end: 20110609
  3. FAMOTIDINE [Concomitant]
     Indication: CROHN'S DISEASE
     Dosage: 20 MG BID AFTER EACH MEALS
     Route: 048
     Dates: end: 20110609
  4. MORPHINE HYDROCHLORIDE HYDRATE [Concomitant]
     Indication: PAIN
     Dosage: 10 MG WHEN THE PATIENT FELT PAIN
     Route: 048
     Dates: end: 20110609
  5. MESALAMINE [Concomitant]
     Indication: CROHN'S DISEASE
     Dosage: 500 MG TID AFTER EACH MEAL
     Route: 048
     Dates: end: 20110609
  6. MORPHINE HYDROCHLORIDE HYDRATE [Concomitant]
     Indication: CROHN'S DISEASE
  7. FENTANYL [Concomitant]
     Indication: CROHN'S DISEASE
  8. HUMIRA [Suspect]
     Indication: CROHN'S DISEASE
     Route: 058
     Dates: start: 20110215, end: 20110215
  9. HUMIRA [Suspect]
     Dates: start: 20110315, end: 20110607
  10. REBAMIPIDE [Concomitant]
     Indication: PRODUCT USED FOR UNKNOWN INDICATION
     Dosage: 100 MG TID AFTER MEALS
     Route: 048
  11. LOXOPROFEN SODIUM HYDRATE [Concomitant]
     Indication: PRODUCT USED FOR UNKNOWN INDICATION
     Dosage: 60 MG TID AFTER MEALS
     Route: 048

REACTIONS (25)
  - BLOOD PRESSURE DECREASED [None]
  - IMMUNOSUPPRESSION [None]
  - PYREXIA [None]
  - PERIPHERAL COLDNESS [None]
  - RENAL FAILURE [None]
  - RESPIRATORY FAILURE [None]
  - ABDOMINAL PAIN [None]
  - DIPLOPIA [None]
  - FEELING ABNORMAL [None]
  - CHEST PAIN [None]
  - HAEMATOCHEZIA [None]
  - PAINFUL RESPIRATION [None]
  - SEPTIC SHOCK [None]
  - PNEUMOTHORAX [None]
  - LUNG INFECTION PSEUDOMONAL [None]
  - GAIT DISTURBANCE [None]
  - SOMNOLENCE [None]
  - HYPOTENSION [None]
  - PSEUDOMONAL SEPSIS [None]
  - DISSEMINATED INTRAVASCULAR COAGULATION [None]
  - HEPATIC FAILURE [None]
  - MULTI-ORGAN FAILURE [None]
  - TACHYPNOEA [None]
  - GENERAL PHYSICAL HEALTH DETERIORATION [None]
  - CARDIO-RESPIRATORY ARREST [None]
